FAERS Safety Report 19675760 (Version 1)
Quarter: 2021Q3

REPORT INFORMATION
  Report Type: Spontaneous
  Country: US (occurrence: US)
  Receive Date: 20210809
  Receipt Date: 20210809
  Transmission Date: 20211014
  Serious: Yes (Other)
  Sender: FDA-Public Use
  Company Number: US-TEVA-2021-US-1939511

PATIENT

DRUGS (2)
  1. COPAXONE [Suspect]
     Active Substance: GLATIRAMER ACETATE
     Dosage: 20 MILLIGRAM DAILY;
     Route: 065
     Dates: start: 2010, end: 2014
  2. COPAXONE [Suspect]
     Active Substance: GLATIRAMER ACETATE
     Dosage: 40 MG IN 1 ML
     Route: 065
     Dates: start: 2014

REACTIONS (7)
  - Injection site discolouration [Not Recovered/Not Resolved]
  - Spider vein [Not Recovered/Not Resolved]
  - Muscle discomfort [Unknown]
  - Injection site mass [Not Recovered/Not Resolved]
  - Injection site swelling [Not Recovered/Not Resolved]
  - Myalgia [Recovering/Resolving]
  - Injection site hypersensitivity [Recovering/Resolving]
